FAERS Safety Report 10994569 (Version 1)
Quarter: 2015Q2

REPORT INFORMATION
  Report Type: Spontaneous
  Country: ZA (occurrence: None)
  Receive Date: 20150406
  Receipt Date: 20150406
  Transmission Date: 20150821
  Serious: No
  Sender: FDA-Public Use
  Company Number: None

PATIENT
  Age: 37 Year
  Sex: Female
  Weight: 63 kg

DRUGS (4)
  1. CLEXANE [Suspect]
     Active Substance: ENOXAPARIN SODIUM
     Indication: CARDIOLIPIN ANTIBODY POSITIVE
     Dosage: 1 INJECTION PER DAY
     Dates: start: 20150308, end: 20150401
  2. CLEXANE [Concomitant]
     Active Substance: ENOXAPARIN SODIUM
  3. PREGNAVIT [Concomitant]
  4. FOLIC ACID. [Concomitant]
     Active Substance: FOLIC ACID

REACTIONS (20)
  - Dyspnoea [None]
  - Injection site discolouration [None]
  - Malaise [None]
  - Pyrexia [None]
  - Neck pain [None]
  - Back pain [None]
  - Heart rate increased [None]
  - Nasal congestion [None]
  - Amniotic fluid volume decreased [None]
  - Chest discomfort [None]
  - Influenza like illness [None]
  - Discomfort [None]
  - Chills [None]
  - Nausea [None]
  - Exposure during pregnancy [None]
  - Paraesthesia [None]
  - Injection site pain [None]
  - Dizziness [None]
  - Headache [None]
  - Bladder disorder [None]

NARRATIVE: CASE EVENT DATE: 20150403
